FAERS Safety Report 19732252 (Version 2)
Quarter: 2021Q3

REPORT INFORMATION
  Report Type: Spontaneous
  Country: DE (occurrence: DE)
  Receive Date: 20210820
  Receipt Date: 20210823
  Transmission Date: 20211014
  Serious: Yes (Other)
  Sender: FDA-Public Use
  Company Number: DE-JAZZ-2020-DE-015843

PATIENT
  Age: 30 Year
  Sex: Female

DRUGS (1)
  1. VYXEOS [Suspect]
     Active Substance: CYTARABINE\DAUNORUBICIN
     Indication: ACUTE MYELOID LEUKAEMIA
     Dosage: INDUCTION THERAPY WITH VYXEOS LIPOSOMAL, UNKNOWN DOSE
     Route: 065
     Dates: start: 202009

REACTIONS (6)
  - Febrile neutropenia [Unknown]
  - Swelling [Unknown]
  - Myalgia [Unknown]
  - Sepsis [Unknown]
  - Pharyngitis [Unknown]
  - Mucosal inflammation [Unknown]

NARRATIVE: CASE EVENT DATE: 2020
